FAERS Safety Report 8397634-9 (Version None)
Quarter: 2012Q2

REPORT INFORMATION
  Report Type: 
  Country: None (occurrence: None)
  Receive Date: 20120529
  Receipt Date: 20120529
  Transmission Date: 20120825
  Serious: Yes (Other)
  Sender: FDA-Public Use
  Company Number: None

PATIENT
  Age: 37 Year
  Sex: Female
  Weight: 81.6475 kg

DRUGS (2)
  1. ABILIFY [Suspect]
     Indication: DEPRESSION
     Dosage: 10 MG DAILY PO
     Route: 048
     Dates: start: 20101210, end: 20120527
  2. ABILIFY [Suspect]
     Indication: BIPOLAR DISORDER
     Dosage: 10 MG DAILY PO
     Route: 048
     Dates: start: 20101210, end: 20120527

REACTIONS (12)
  - CONFUSIONAL STATE [None]
  - ABNORMAL BEHAVIOUR [None]
  - JOINT SWELLING [None]
  - OEDEMA PERIPHERAL [None]
  - OEDEMA [None]
  - HYPERHIDROSIS [None]
  - DIPLOPIA [None]
  - DYSKINESIA [None]
  - TEMPERATURE INTOLERANCE [None]
  - FRUSTRATION [None]
  - FACE OEDEMA [None]
  - FEELING ABNORMAL [None]
